FAERS Safety Report 9351336 (Version 3)
Quarter: 2014Q2

REPORT INFORMATION
  Report Type: Spontaneous
  Country: US (occurrence: US)
  Receive Date: 20130617
  Receipt Date: 20140512
  Transmission Date: 20141212
  Serious: Yes (Hospitalization, Other)
  Sender: FDA-Public Use
  Company Number: US-BAYER-2013-072795

PATIENT
  Age: 20 Year
  Sex: Female
  Weight: 56.69 kg

DRUGS (13)
  1. YASMIN [Suspect]
     Indication: PREMENSTRUAL SYNDROME
     Dosage: UNK
     Dates: start: 20071117, end: 20080107
  2. NUVARING [Concomitant]
     Dosage: UNK
     Dates: start: 2010
  3. ZOFRAN [Concomitant]
  4. PHENERGAN [Concomitant]
     Dosage: UNK UNK, PRN
  5. PREDNISONE [Concomitant]
     Dosage: 50 MG, X5 DAYS AFTER EACH DOSE OF CHEMO
  6. ZOMIG [Concomitant]
     Dosage: 2.5 MG, UNK
  7. KLOR-CON [Concomitant]
     Dosage: M20
  8. ONDANSETRON HYDROCHLORIDE [Concomitant]
     Dosage: 8 MG, UNK
  9. PROMETHAZINE [Concomitant]
     Dosage: 25 MG, UNK
  10. HYDROCODONE W/APAP [Concomitant]
     Dosage: 7.5-500
  11. ALLOPURINOL [Concomitant]
     Dosage: 300 MG, UNK
  12. LORAZEPAM [Concomitant]
     Dosage: 1 MG, UNK
  13. LORTAB [Concomitant]
     Indication: MIGRAINE
     Dosage: UNK UNK, PRN

REACTIONS (17)
  - Cerebrovascular accident [None]
  - Atrial thrombosis [None]
  - Thalamic infarction [None]
  - Deep vein thrombosis [None]
  - Confusional state [None]
  - Hypoaesthesia [None]
  - Diplopia [None]
  - Speech disorder [None]
  - Hypoaesthesia [None]
  - Pain [None]
  - Injury [None]
  - General physical health deterioration [None]
  - Anxiety [None]
  - Emotional distress [None]
  - Anhedonia [None]
  - Cerebrovascular accident [None]
  - Fear [None]
